FAERS Safety Report 7438327-1 (Version None)
Quarter: 2011Q2

REPORT INFORMATION
  Report Type: 
  Country: None (occurrence: None)
  Receive Date: 20110426
  Receipt Date: 20110420
  Transmission Date: 20111010
  Serious: Yes (Hospitalization)
  Sender: FDA-Public Use
  Company Number: US-ABBOTT-11P-163-0721204-00

PATIENT
  Sex: Female
  Weight: 88.984 kg

DRUGS (12)
  1. LEVOTHYROXINE SODIUM [Concomitant]
     Indication: HYPOTHYROIDISM
     Route: 048
  2. SIMVASTATIN [Concomitant]
     Indication: BLOOD CHOLESTEROL INCREASED
     Route: 048
  3. IRON INFUSIONS [Concomitant]
     Indication: ANAEMIA
     Route: 042
     Dates: start: 20050101
  4. METOPROLOL [Concomitant]
     Indication: HYPERTENSION
     Route: 048
  5. GEMFIBROZIL [Concomitant]
     Indication: BLOOD CHOLESTEROL INCREASED
     Route: 048
  6. PREMARIN [Suspect]
     Indication: HORMONE REPLACEMENT THERAPY
     Route: 048
     Dates: start: 19890101, end: 20110201
  7. VERAPAMIL EXTENDED-RELEASE [Concomitant]
     Indication: HYPERTENSION
     Route: 048
  8. WARFARIN SODIUM [Concomitant]
     Indication: ANTICOAGULANT THERAPY
     Route: 048
     Dates: start: 20110201
  9. NEXIUM ER [Concomitant]
     Indication: GASTRIC DISORDER
     Route: 048
  10. HUMIRA [Suspect]
     Indication: CROHN'S DISEASE
     Route: 058
     Dates: start: 20101016
  11. WARFARIN SODIUM [Concomitant]
     Indication: THROMBOSIS PROPHYLAXIS
  12. VITAMIN B-12 [Concomitant]
     Indication: PRODUCT USED FOR UNKNOWN INDICATION
     Route: 050

REACTIONS (10)
  - INJECTION SITE PRURITUS [None]
  - OEDEMA PERIPHERAL [None]
  - RECTAL HAEMORRHAGE [None]
  - DYSPNOEA [None]
  - INJECTION SITE ERYTHEMA [None]
  - INJECTION SITE HAEMATOMA [None]
  - DEEP VEIN THROMBOSIS [None]
  - INFLUENZA [None]
  - FAECES DISCOLOURED [None]
  - PULMONARY EMBOLISM [None]
